FAERS Safety Report 18981019 (Version 1)
Quarter: 2021Q1

REPORT INFORMATION
  Report Type: Other
  Country: ES (occurrence: ES)
  Receive Date: 20210308
  Receipt Date: 20210308
  Transmission Date: 20210420
  Serious: Yes (Hospitalization, Other)
  Sender: FDA-Public Use
  Company Number: ES-ROCHE-2781101

PATIENT

DRUGS (7)
  1. TISAGENLECLEUCEL. [Suspect]
     Active Substance: TISAGENLECLEUCEL
     Indication: ACUTE LYMPHOCYTIC LEUKAEMIA
     Route: 065
  2. INOTUZUMAB [Suspect]
     Active Substance: INOTUZUMAB OZOGAMICIN
     Indication: ACUTE LYMPHOCYTIC LEUKAEMIA
     Route: 065
  3. CYCLOPHOSPHAMIDE. [Suspect]
     Active Substance: CYCLOPHOSPHAMIDE
     Indication: ACUTE LYMPHOCYTIC LEUKAEMIA
     Dosage: 900?1000 MG/M2 ONE WEEK PRIOR TO CART CELL INFUSION
     Route: 065
  4. BLINATUMOMAB [Suspect]
     Active Substance: BLINATUMOMAB
     Indication: ACUTE LYMPHOCYTIC LEUKAEMIA
     Route: 065
  5. BORTEZOMIB. [Suspect]
     Active Substance: BORTEZOMIB
     Indication: ACUTE LYMPHOCYTIC LEUKAEMIA
     Route: 065
  6. FLUDARABINE [Suspect]
     Active Substance: FLUDARABINE PHOSPHATE
     Indication: ACUTE LYMPHOCYTIC LEUKAEMIA
     Dosage: 90?120 MG/M2 ONE WEEK PRIOR TO CART CELL INFUSION
     Route: 065
  7. RITUXIMAB. [Suspect]
     Active Substance: RITUXIMAB
     Indication: ACUTE LYMPHOCYTIC LEUKAEMIA
     Route: 065

REACTIONS (12)
  - Device related infection [Unknown]
  - Meningoencephalitis herpetic [Unknown]
  - Pleural effusion [Unknown]
  - Meningitis haemophilus [Unknown]
  - Gastrointestinal infection [Unknown]
  - Pneumonia [Unknown]
  - Rhinovirus infection [Unknown]
  - Pertussis [Unknown]
  - Upper respiratory tract infection [Unknown]
  - Adenovirus reactivation [Unknown]
  - Herpes zoster [Unknown]
  - Respiratory tract infection viral [Unknown]
